FAERS Safety Report 23094354 (Version 1)
Quarter: 2023Q4

REPORT INFORMATION
  Report Type: Spontaneous
  Country: JP (occurrence: JP)
  Receive Date: 20231023
  Receipt Date: 20231023
  Transmission Date: 20240110
  Serious: Yes (Other)
  Sender: FDA-Public Use
  Company Number: JP-TAKEDA-2023TJP013836

PATIENT
  Age: 2 Decade
  Sex: Male

DRUGS (3)
  1. ADVATE [Suspect]
     Active Substance: ANTIHEMOPHILIC FACTOR, HUMAN RECOMBINANT
     Indication: Haemorrhagic diathesis
     Dosage: 1000 INTERNATIONAL UNIT, 3/WEEK
     Route: 042
  2. ADVATE [Suspect]
     Active Substance: ANTIHEMOPHILIC FACTOR, HUMAN RECOMBINANT
     Indication: Haemorrhagic diathesis
     Dosage: 1000 INTERNATIONAL UNIT, 3/WEEK
     Route: 042
  3. ADVATE [Suspect]
     Active Substance: ANTIHEMOPHILIC FACTOR, HUMAN RECOMBINANT
     Indication: Haemorrhagic diathesis
     Dosage: 1000 INTERNATIONAL UNIT, 3/WEEK
     Route: 042

REACTIONS (1)
  - Haemarthrosis [Unknown]
